FAERS Safety Report 8472428-4 (Version None)
Quarter: 2012Q2

REPORT INFORMATION
  Report Type: 
  Country: None (occurrence: None)
  Receive Date: 20120627
  Receipt Date: 20110920
  Transmission Date: 20120825
  Serious: No
  Sender: FDA-Public Use
  Company Number: US-AMGEN-USASP2011049238

PATIENT
  Age: 75 Year
  Sex: Male
  Weight: 80.726 kg

DRUGS (5)
  1. PROCRIT [Suspect]
     Dosage: 60000 IU, UNK
     Route: 058
     Dates: start: 20110701
  2. TERAZOSIN HCL [Concomitant]
     Indication: HYPERTENSION
     Dosage: 10 MG, QD
     Route: 048
     Dates: start: 20010101
  3. PROCRIT [Suspect]
     Indication: MYELODYSPLASTIC SYNDROME
     Dosage: 40000 IU, UNK
     Route: 058
     Dates: start: 20110501, end: 20110701
  4. AVODART [Concomitant]
     Indication: HYPERTENSION
     Dosage: 5 MG, QD
     Route: 048
     Dates: start: 20080101
  5. PRILOSEC [Suspect]
     Indication: DYSPEPSIA
     Dosage: 20 MG, QD
     Route: 048
     Dates: start: 20080101

REACTIONS (5)
  - HAEMOGLOBIN DECREASED [None]
  - MUSCULOSKELETAL PAIN [None]
  - MEMORY IMPAIRMENT [None]
  - FIBROMYALGIA [None]
  - PAIN IN EXTREMITY [None]
